FAERS Safety Report 24002129 (Version 2)
Quarter: 2024Q3

REPORT INFORMATION
  Report Type: Spontaneous
  Country: US (occurrence: US)
  Receive Date: 20240622
  Receipt Date: 20240705
  Transmission Date: 20241017
  Serious: Yes (Other)
  Sender: TEVA
  Company Number: US-TEVA-VS-3202452

PATIENT
  Age: 94 Year
  Sex: Female

DRUGS (4)
  1. ACITRETIN [Suspect]
     Active Substance: ACITRETIN
     Indication: Squamous cell carcinoma of skin
     Route: 048
  2. CEMIPLIMAB [Suspect]
     Active Substance: CEMIPLIMAB
     Indication: Squamous cell carcinoma of skin
     Route: 042
  3. FLUOROURACIL [Suspect]
     Active Substance: FLUOROURACIL
     Indication: Squamous cell carcinoma of skin
     Route: 026
  4. FLUOROURACIL [Suspect]
     Active Substance: FLUOROURACIL
     Indication: Squamous cell carcinoma of skin
     Dosage: 5-FLUOROURACIL
     Route: 061

REACTIONS (3)
  - Drug ineffective [Unknown]
  - Rash [Unknown]
  - Keratoacanthoma [Unknown]
